FAERS Safety Report 25739281 (Version 2)
Quarter: 2025Q3

REPORT INFORMATION
  Report Type: Spontaneous
  Country: EU (occurrence: EU)
  Receive Date: 20250829
  Receipt Date: 20250917
  Transmission Date: 20251021
  Serious: Yes (Hospitalization, Other)
  Sender: CELLTRION
  Company Number: EU-BAXTER-2025BAX019725

PATIENT

DRUGS (6)
  1. BEVACIZUMAB [Suspect]
     Active Substance: BEVACIZUMAB
     Indication: Ovarian cancer
     Dosage: 10 MG/KG, EVERY 2 WK
     Route: 042
     Dates: start: 20250103, end: 20250703
  2. DOXORUBICIN [Suspect]
     Active Substance: DOXORUBICIN
     Indication: Ovarian cancer
     Dosage: 30 MG/M2, EVERY 4 WK
     Route: 042
     Dates: start: 20250103, end: 20250206
  3. DOXORUBICIN [Suspect]
     Active Substance: DOXORUBICIN
     Dosage: 24 MG/M2, EVERY 4 WK
     Route: 042
     Dates: start: 20250306, end: 20250703
  4. CARBOPLATIN [Suspect]
     Active Substance: CARBOPLATIN
     Indication: Ovarian cancer
     Dosage: UNK UNK, Q4WEEKS
     Route: 042
     Dates: start: 20250103, end: 20250206
  5. CARBOPLATIN [Suspect]
     Active Substance: CARBOPLATIN
     Dosage: UNK UNK, Q4WEEKS
     Route: 042
     Dates: start: 20250306, end: 20250703
  6. MIRVETUXIMAB SORAVTANSINE [Suspect]
     Active Substance: MIRVETUXIMAB SORAVTANSINE
     Indication: Ovarian cancer

REACTIONS (4)
  - Pancytopenia [Recovered/Resolved]
  - Anaemia [Unknown]
  - Thrombocytopenia [Unknown]
  - Neutrophil count decreased [Unknown]

NARRATIVE: CASE EVENT DATE: 20250716
